FAERS Safety Report 4947846-9 (Version None)
Quarter: 2006Q1

REPORT INFORMATION
  Report Type: 
  Country: None (occurrence: None)
  Receive Date: 20060310
  Receipt Date: 20060227
  Transmission Date: 20060701
  Serious: Yes (Life-Threatening, Hospitalization)
  Sender: FDA-Public Use
  Company Number: 200610810GDS

PATIENT
  Age: 51 Year
  Sex: Male

DRUGS (5)
  1. NIFEDIPINE [Suspect]
     Indication: SUICIDE ATTEMPT
     Dosage: 520 MG, TOTAL DAILY,
     Dates: start: 20041204
  2. IMIDAPRIL HYDROCHLORIDE [Suspect]
     Indication: SUICIDE ATTEMPT
     Dosage: 120 MG, TOTAL DAILY,
     Dates: start: 20041204
  3. DOXAZOSIN MESYLATE [Suspect]
     Indication: SUICIDE ATTEMPT
     Dosage: 52 MG, TOTAL DAILY,
     Dates: start: 20041204
  4. METHYLDOPA [Suspect]
     Indication: SUICIDE ATTEMPT
     Dosage: 13500 MG, TOTAL DAILY,
     Dates: start: 20041204
  5. MULTIPLE PSYCHOTROPIC AGENTS [Suspect]
     Indication: SUICIDE ATTEMPT

REACTIONS (6)
  - CARDIOGENIC SHOCK [None]
  - DRUG TOXICITY [None]
  - MULTIPLE DRUG OVERDOSE INTENTIONAL [None]
  - SOMNOLENCE [None]
  - SUICIDE ATTEMPT [None]
  - THERAPY NON-RESPONDER [None]
